FAERS Safety Report 9887565 (Version 2)
Quarter: 2014Q1

REPORT INFORMATION
  Report Type: Report from Study
  Country: US (occurrence: US)
  Receive Date: 20140211
  Receipt Date: 20140227
  Transmission Date: 20141002
  Serious: Yes (Hospitalization)
  Sender: FDA-Public Use
  Company Number: US-ROCHE-1345197

PATIENT
  Age: 41 Year
  Sex: Male

DRUGS (11)
  1. LUCENTIS [Suspect]
     Indication: HAEMORRHAGE
     Dosage: RIGHT EYE
     Route: 050
     Dates: start: 201301, end: 201311
  2. LUCENTIS [Suspect]
     Indication: MACULAR OEDEMA
  3. LUCENTIS [Suspect]
     Indication: DIABETIC RETINOPATHY
  4. AVASTIN [Suspect]
     Indication: RETINAL HAEMORRHAGE
     Route: 050
     Dates: start: 20131214
  5. LANTUS [Concomitant]
     Indication: DIABETES MELLITUS
     Dosage: TAKES AT NIGHT
     Route: 058
  6. NOVOLOG [Concomitant]
     Indication: DIABETES MELLITUS
     Dosage: TAKES WITH MEALS
     Route: 058
  7. CITALOPRAM [Concomitant]
  8. FUROSEMIDE [Concomitant]
     Route: 065
  9. GABAPENTIN [Concomitant]
  10. LISINOPRIL [Concomitant]
  11. PANTOPRAZOLE [Concomitant]

REACTIONS (4)
  - Pneumonia [Recovered/Resolved]
  - Skin infection [Recovered/Resolved]
  - Vitreous floaters [Not Recovered/Not Resolved]
  - Visual impairment [Recovered/Resolved]
